FAERS Safety Report 4611356-9 (Version None)
Quarter: 2005Q2

REPORT INFORMATION
  Report Type: 
  Country: None (occurrence: None)
  Receive Date: 20050311
  Receipt Date: 20050124
  Transmission Date: 20051028
  Serious: No
  Sender: FDA-Public Use
  Company Number: 2005-BP-01170BP

PATIENT
  Age: 77 Year
  Sex: Male

DRUGS (8)
  1. SPIRIVA [Suspect]
     Indication: CHRONIC OBSTRUCTIVE PULMONARY DISEASE
     Dosage: 18 MCG (18 MCG), IH
     Route: 055
     Dates: start: 20041101
  2. ALBUTEROL [Concomitant]
  3. WARFARIN SODIUM [Concomitant]
  4. VERAPAMIL [Concomitant]
  5. LANOXIN [Concomitant]
  6. XANAX [Concomitant]
  7. LASIX [Concomitant]
  8. SINGULAIR [Concomitant]

REACTIONS (1)
  - DRUG INEFFECTIVE [None]
